FAERS Safety Report 7654178 (Version 2)
Quarter: 2012Q4

REPORT INFORMATION
  Report Type: Report from Study
  Country: US (occurrence: US)
  Receive Date: 20101102
  Receipt Date: 20121102
  Transmission Date: 20130627
  Serious: No
  Sender: FDA-Public Use
  Company Number: US-ABBOTT-09P-163-0615087-00

PATIENT
  Sex: Female

DRUGS (2)
  1. BIAXIN [Suspect]
     Indication: PNEUMONIA
     Dates: start: 2007, end: 2007
  2. AMOXICILLIN [Concomitant]
     Indication: PNEUMONIA
     Dates: start: 2007, end: 2007

REACTIONS (2)
  - Gastric disorder [Recovered/Resolved]
  - Vomiting [Recovered/Resolved]
